FAERS Safety Report 21023727 (Version 1)
Quarter: 2022Q2

REPORT INFORMATION
  Report Type: Spontaneous
  Country: US (occurrence: None)
  Receive Date: 20220629
  Receipt Date: 20220629
  Transmission Date: 20220721
  Serious: Yes (Death)
  Sender: FDA-Public Use
  Company Number: None

PATIENT
  Age: 72 Year
  Sex: Male

DRUGS (5)
  1. GLASSIA [Suspect]
     Active Substance: .ALPHA.1-PROTEINASE INHIBITOR HUMAN
     Indication: Alpha-1 antitrypsin deficiency
     Dosage: OTHER QUANTITY : 1000 MG/50ML;?FREQUENCY : WEEKLY;?
     Route: 042
     Dates: start: 20210226, end: 20220621
  2. EPINEPHRINE [Concomitant]
     Active Substance: EPINEPHRINE
  3. MONOJECT PHARMA GRADE FLU [Concomitant]
  4. SODIUM CHLORIDE [Concomitant]
     Active Substance: SODIUM CHLORIDE
  5. SODIUM CHLORIDE [Concomitant]
     Active Substance: SODIUM CHLORIDE

REACTIONS (1)
  - Death [None]

NARRATIVE: CASE EVENT DATE: 20220621
